FAERS Safety Report 11813489 (Version 1)
Quarter: 2015Q4

REPORT INFORMATION
  Report Type: Spontaneous
  Country: US (occurrence: US)
  Receive Date: 20151209
  Receipt Date: 20151209
  Transmission Date: 20160305
  Serious: Yes (Other)
  Sender: FDA-Public Use
  Company Number: PHEH2015US025226

PATIENT
  Age: 83 Year
  Sex: Male

DRUGS (2)
  1. TEMODAR [Concomitant]
     Active Substance: TEMOZOLOMIDE
     Indication: CHEMOTHERAPY
     Dosage: 180 MG, DAILY X 5 DAYS
     Route: 048
     Dates: start: 201411, end: 201507
  2. SANDOSTATIN LAR DEPOT [Suspect]
     Active Substance: OCTREOTIDE ACETATE
     Indication: NEUROENDOCRINE TUMOUR
     Dosage: UNK UNK, MONTHLY
     Route: 065

REACTIONS (8)
  - Iron deficiency anaemia [Recovered/Resolved]
  - Gastrointestinal haemorrhage [Unknown]
  - Nausea [Unknown]
  - Spinal compression fracture [Unknown]
  - Metastases to liver [Unknown]
  - Thoracic vertebral fracture [Unknown]
  - Metastases to spleen [Unknown]
  - Malignant neoplasm progression [Unknown]

NARRATIVE: CASE EVENT DATE: 20150623
